FAERS Safety Report 4365137-4 (Version None)
Quarter: 2004Q2

REPORT INFORMATION
  Report Type: 
  Country: None (occurrence: None)
  Receive Date: 20040520
  Receipt Date: 20040505
  Transmission Date: 20050107
  Serious: Yes (Other)
  Sender: FDA-Public Use
  Company Number: 205089

PATIENT
  Age: 56 Year
  Sex: Female

DRUGS (9)
  1. HERCEPTIN [Suspect]
     Indication: BREAST CANCER
     Dosage: SEE IMAGE INTRAVENOUS
     Route: 042
     Dates: start: 20030902, end: 20030902
  2. HERCEPTIN [Suspect]
     Indication: BREAST CANCER
     Dosage: SEE IMAGE INTRAVENOUS
     Route: 042
     Dates: start: 20030908, end: 20031230
  3. HERCEPTIN [Suspect]
     Indication: BREAST CANCER
     Dosage: SEE IMAGE INTRAVENOUS
     Route: 042
     Dates: start: 20040112, end: 20040223
  4. TAXOTERE [Suspect]
     Indication: BREAST CANCER
     Dosage: 149 MG, Q3W, INTRAVENOUS
     Route: 042
     Dates: start: 20030903, end: 20031216
  5. CARBOPLATIN [Suspect]
     Indication: BREAST CANCER
     Dosage: 805 MG, Q3W, INTRAVENOUS
     Route: 042
     Dates: start: 20030903, end: 20031216
  6. TYLENOL [Concomitant]
  7. ATACAND [Concomitant]
  8. BENADRYL [Concomitant]
  9. RADIOTHERAPY (RADIATION THERAPY) [Concomitant]

REACTIONS (8)
  - ARRHYTHMIA [None]
  - CHEST PAIN [None]
  - DYSPNOEA [None]
  - ELECTROCARDIOGRAM CHANGE [None]
  - ELECTROCARDIOGRAM ST-T CHANGE [None]
  - ELECTROCARDIOGRAM T WAVE ABNORMAL [None]
  - MALAISE [None]
  - PALPITATIONS [None]
